FAERS Safety Report 9633267 (Version 1)
Quarter: 2013Q4

REPORT INFORMATION
  Report Type: Spontaneous
  Country: FR (occurrence: FR)
  Receive Date: 20131021
  Receipt Date: 20131021
  Transmission Date: 20140711
  Serious: Yes (Hospitalization)
  Sender: FDA-Public Use
  Company Number: PHHY2013FR117732

PATIENT
  Age: 65 Year
  Sex: Female

DRUGS (5)
  1. TEGRETOL [Suspect]
     Indication: EPILEPSY
     Dosage: 600 MG, BID
     Dates: end: 201309
  2. TEGRETOL [Suspect]
     Dosage: 800 MG, BID
     Dates: start: 201309, end: 201309
  3. TEGRETOL [Suspect]
     Dosage: 600 MG, BID
     Dates: start: 201309
  4. ALEPSAL                            /01606601/ [Concomitant]
     Dosage: UNK UKN, UNK
  5. RIVOTRIL [Concomitant]
     Dosage: UNK UKN, UNK

REACTIONS (3)
  - Tremor [Recovered/Resolved]
  - Diplopia [Recovered/Resolved]
  - Dizziness [Recovered/Resolved]
